FAERS Safety Report 12144459 (Version 2)
Quarter: 2016Q2

REPORT INFORMATION
  Report Type: Spontaneous
  Country: US (occurrence: US)
  Receive Date: 20160304
  Receipt Date: 20160427
  Transmission Date: 20160815
  Serious: No
  Sender: FDA-Public Use
  Company Number: US-PFIZER INC-2016136449

PATIENT
  Age: 56 Year
  Sex: Male

DRUGS (4)
  1. VIAGRA [Concomitant]
     Active Substance: SILDENAFIL CITRATE
     Dosage: UNK
     Dates: start: 2005, end: 2011
  2. NICOTROL [Suspect]
     Active Substance: NICOTINE
     Indication: SMOKING CESSATION THERAPY
     Dosage: UNK
     Dates: start: 2005
  3. VIAGRA [Concomitant]
     Active Substance: SILDENAFIL CITRATE
     Dosage: UNK
     Dates: start: 201510
  4. NICOTROL [Suspect]
     Active Substance: NICOTINE
     Dosage: 10 MG, (8-10X DAY)
     Dates: start: 2015

REACTIONS (1)
  - Nasal discomfort [Recovered/Resolved]
